FAERS Safety Report 21909170 (Version 1)
Quarter: 2023Q1

REPORT INFORMATION
  Report Type: Spontaneous
  Country: US (occurrence: US)
  Receive Date: 20230125
  Receipt Date: 20230125
  Transmission Date: 20230418
  Serious: No
  Sender: FDA-Public Use
  Company Number: US-MYOVANT SCIENCES GMBH-2022MYSCI1000574

PATIENT
  Age: 39 Year
  Sex: Female

DRUGS (1)
  1. MYFEMBREE [Suspect]
     Active Substance: ESTRADIOL HEMIHYDRATE\NORETHINDRONE ACETATE\RELUGOLIX
     Indication: Uterine leiomyoma
     Dosage: 1 TAB, QD
     Route: 048

REACTIONS (9)
  - Abdominal distension [Unknown]
  - Insomnia [Unknown]
  - Hair growth abnormal [Unknown]
  - Alopecia [Unknown]
  - Therapy interrupted [Unknown]
  - Fear [Unknown]
  - Hyperphagia [Unknown]
  - Pollakiuria [Unknown]
  - Depressed mood [Unknown]

NARRATIVE: CASE EVENT DATE: 20220901
